FAERS Safety Report 9004403 (Version 1)
Quarter: 2013Q1

REPORT INFORMATION
  Report Type: Spontaneous
  Country: US (occurrence: None)
  Receive Date: 20130104
  Receipt Date: 20130104
  Transmission Date: 20140127
  Serious: Yes (Other)
  Sender: FDA-Public Use
  Company Number: None

PATIENT
  Sex: Male
  Weight: 88.45 kg

DRUGS (2)
  1. ZUTRIPRO [Suspect]
     Indication: COUGH
     Dosage: 1 - TEASPOONFUL  6 HOURS?DEC 15?DEC 17
  2. ZUTRIPRO [Suspect]
     Indication: SINUS DISORDER
     Dosage: 1 - TEASPOONFUL  6 HOURS?DEC 15?DEC 17

REACTIONS (5)
  - Nausea [None]
  - Feeling abnormal [None]
  - Gastric disorder [None]
  - Vomiting [None]
  - Loss of consciousness [None]
